FAERS Safety Report 20485867 (Version 2)
Quarter: 2022Q1

REPORT INFORMATION
  Report Type: Spontaneous
  Country: US (occurrence: US)
  Receive Date: 20220217
  Receipt Date: 20220303
  Transmission Date: 20220423
  Serious: Yes (Hospitalization, Other)
  Sender: FDA-Public Use
  Company Number: US-TEVA-2022-US-2007190

PATIENT
  Age: 65 Year
  Sex: Female

DRUGS (3)
  1. MYCOPHENOLATE MOFETIL [Suspect]
     Active Substance: MYCOPHENOLATE MOFETIL
     Indication: Cryoglobulinaemia
     Route: 065
  2. RIBAVIRIN [Concomitant]
     Active Substance: RIBAVIRIN
     Indication: Hepatitis C
     Route: 065
  3. SOFOSBUVIR [Concomitant]
     Active Substance: SOFOSBUVIR
     Indication: Hepatitis C
     Route: 065

REACTIONS (5)
  - Rebound effect [Recovering/Resolving]
  - Cryoglobulinaemia [Recovering/Resolving]
  - Vasculitis [Recovering/Resolving]
  - Acute kidney injury [Recovering/Resolving]
  - Glomerulonephritis membranoproliferative [Recovering/Resolving]
